FAERS Safety Report 8044387-X (Version None)
Quarter: 2012Q1

REPORT INFORMATION
  Report Type: 
  Country: None (occurrence: None)
  Receive Date: 20120113
  Receipt Date: 20120103
  Transmission Date: 20120608
  Serious: Yes (Death)
  Sender: FDA-Public Use
  Company Number: US-SHIONOGI, INC-2012000018

PATIENT
  Age: 50 Year
  Sex: Female

DRUGS (8)
  1. ACETAMINOPHEN [Suspect]
     Dosage: UNK
  2. MORPHINE [Suspect]
     Dosage: UNK
  3. OXYCODONE HCL [Suspect]
     Dosage: UNK
  4. ALPRAZOLAM [Suspect]
     Dosage: UNK
  5. ESZOPICLONE [Suspect]
     Dosage: UNK
  6. IBUPROFEN [Suspect]
     Dosage: UNK
  7. NAPROXEN [Suspect]
     Dosage: UNK
  8. FLUOXETINE [Suspect]
     Dosage: UNK

REACTIONS (2)
  - COMPLETED SUICIDE [None]
  - CARDIO-RESPIRATORY ARREST [None]
